FAERS Safety Report 20205977 (Version 1)
Quarter: 2021Q4

REPORT INFORMATION
  Report Type: Spontaneous
  Country: US (occurrence: None)
  Receive Date: 20211217
  Receipt Date: 20211217
  Transmission Date: 20220303
  Serious: No
  Sender: FDA-Public Use
  Company Number: None

PATIENT
  Age: 78 Year
  Sex: Male

DRUGS (1)
  1. SUNITINIB [Suspect]
     Active Substance: SUNITINIB
     Indication: Renal cancer
     Dosage: FREQUENCY : DAILY;?
     Route: 048

REACTIONS (3)
  - Fall [None]
  - Contusion [None]
  - Road traffic accident [None]

NARRATIVE: CASE EVENT DATE: 20211217
